FAERS Safety Report 7506800-3 (Version None)
Quarter: 2011Q2

REPORT INFORMATION
  Report Type: 
  Country: None (occurrence: None)
  Receive Date: 20110526
  Receipt Date: 20110516
  Transmission Date: 20111010
  Serious: Yes (Death, Hospitalization)
  Sender: FDA-Public Use
  Company Number: A0909354A

PATIENT
  Age: 54 Year
  Sex: Female
  Weight: 53.5 kg

DRUGS (1)
  1. FLOLAN [Suspect]
     Indication: PULMONARY ARTERIAL HYPERTENSION
     Route: 065
     Dates: start: 20070514

REACTIONS (3)
  - LABORATORY TEST ABNORMAL [None]
  - CARDIAC FAILURE [None]
  - THERAPEUTIC PROCEDURE [None]
